FAERS Safety Report 17986496 (Version 3)
Quarter: 2020Q4

REPORT INFORMATION
  Report Type: Report from Study
  Country: FR (occurrence: FR)
  Receive Date: 20200707
  Receipt Date: 20201008
  Transmission Date: 20210113
  Serious: Yes (Hospitalization, Other)
  Sender: FDA-Public Use
  Company Number: FR-AUROBINDO-AUR-APL-2020-032180

PATIENT
  Age: 29 Year
  Sex: Male

DRUGS (5)
  1. LEVOFLOXACIN. [Suspect]
     Active Substance: LEVOFLOXACIN
     Dosage: 500 MILLIGRAM, TWO TIMES A DAY
     Route: 065
  2. SPIRAMYCIN [Suspect]
     Active Substance: SPIRAMYCIN
     Indication: PNEUMONIA LEGIONELLA
     Dosage: 3 MEGA-INTERNATIONAL UNIT, 3 TIMES A DAY
     Route: 065
  3. AZITHROMYCIN ANHYDROUS. [Suspect]
     Active Substance: AZITHROMYCIN ANHYDROUS
     Indication: PNEUMONIA LEGIONELLA
     Dosage: 500 MILLIGRAM, ONCE A DAY
     Route: 065
  4. LEVOFLOXACIN. [Suspect]
     Active Substance: LEVOFLOXACIN
     Indication: PNEUMONIA LEGIONELLA
     Dosage: 500 MILLIGRAM, TWO TIMES A DAY,1000 MILLIGRAM DAILY;
     Route: 065
  5. RIFAMPICIN [Interacting]
     Active Substance: RIFAMPIN
     Indication: PNEUMONIA LEGIONELLA
     Dosage: 600 MILLIGRAM, TWO TIMES A DAY
     Route: 065

REACTIONS (6)
  - Lung abscess [Unknown]
  - Drug interaction [Not Recovered/Not Resolved]
  - Therapeutic response decreased [Not Recovered/Not Resolved]
  - Pneumonia legionella [Unknown]
  - Drug ineffective [Unknown]
  - Treatment failure [Not Recovered/Not Resolved]
